FAERS Safety Report 13202300 (Version 1)
Quarter: 2017Q1

REPORT INFORMATION
  Report Type: Report from Study
  Country: US (occurrence: US)
  Receive Date: 20170208
  Receipt Date: 20170208
  Transmission Date: 20170428
  Serious: No
  Sender: FDA-Public Use
  Company Number: US-AMGEN-USASL2016077613

PATIENT
  Age: 51 Year
  Sex: Male

DRUGS (3)
  1. NEULASTA [Suspect]
     Active Substance: PEGFILGRASTIM
     Indication: VOMITING
  2. NEULASTA [Suspect]
     Active Substance: PEGFILGRASTIM
     Indication: GASTRIC CANCER
     Dosage: UNK
     Route: 065
  3. NEULASTA [Suspect]
     Active Substance: PEGFILGRASTIM
     Indication: NAUSEA
     Dosage: UNK
     Route: 065

REACTIONS (1)
  - Off label use [Unknown]
